FAERS Safety Report 8545868-2 (Version None)
Quarter: 2012Q3

REPORT INFORMATION
  Report Type: 
  Country: None (occurrence: None)
  Receive Date: 20120727
  Receipt Date: 20111116
  Transmission Date: 20120928
  Serious: No
  Sender: FDA-Public Use
  Company Number: US-ASTRAZENECA-2011SE69710

PATIENT
  Sex: Female

DRUGS (4)
  1. SEROQUEL [Suspect]
     Dosage: ONE IN THE DAY AND ONE AT NIGHT
     Route: 048
  2. LEXAPRO [Concomitant]
  3. ARICEPT [Concomitant]
  4. NAMENDA [Concomitant]

REACTIONS (7)
  - MOOD ALTERED [None]
  - IRRITABILITY [None]
  - ABNORMAL BEHAVIOUR [None]
  - AGITATION [None]
  - DEPRESSION [None]
  - DEMENTIA ALZHEIMER'S TYPE [None]
  - WRONG TECHNIQUE IN DRUG USAGE PROCESS [None]
